FAERS Safety Report 8609108 (Version 2)
Quarter: 2013Q3

REPORT INFORMATION
  Report Type: Report from Study
  Country: JP (occurrence: JP)
  Receive Date: 20120611
  Receipt Date: 20130927
  Transmission Date: 20140515
  Serious: Yes (Death, Life-Threatening, Disabling, Other)
  Sender: FDA-Public Use
  Company Number: PHHY2009JP18317

PATIENT
  Age: 82 Year
  Sex: Female

DRUGS (16)
  1. AMN107 [Suspect]
     Indication: CHRONIC MYELOID LEUKAEMIA
     Dosage: 800 MG, DAILY
     Route: 048
     Dates: start: 20090501, end: 20110314
  2. AMN107 [Suspect]
     Dosage: 800 MG, DAILY
     Route: 048
     Dates: start: 20110317, end: 20110411
  3. DIOVAN [Concomitant]
     Dosage: 80 MG, UNK
     Route: 048
  4. AMLODIN [Concomitant]
     Dosage: 5 MG, UNK
     Route: 048
  5. LASIX [Concomitant]
     Dosage: 40 MG, UNK
     Route: 048
  6. GASTER D [Concomitant]
     Dosage: 20 MG, UNK
     Route: 048
  7. MEVAN [Concomitant]
     Dosage: 5 MG, UNK
     Route: 048
     Dates: start: 20090702
  8. ASPARA K [Concomitant]
     Dosage: 900 MG, UNK
     Dates: start: 20110411
  9. ALDACTONE-A [Concomitant]
     Dosage: 50 MG, UNK
     Dates: start: 20110411
  10. ALOSITOL [Concomitant]
     Dosage: 400 MG, UNK
     Dates: start: 20110411
  11. SUMIFERON [Concomitant]
     Indication: CHRONIC MYELOID LEUKAEMIA
     Dosage: UNK
     Dates: start: 20110301, end: 20110404
  12. OMEGACIN [Concomitant]
     Dosage: 0.3 G, UNK
  13. CEFOPERAZONE SODIUM/SULBACTAM SODIUM [Concomitant]
     Dosage: 2 G, UNK
     Dates: start: 20110228, end: 20110307
  14. OMEPRAL [Concomitant]
     Dosage: 20 MG, UNK
     Dates: start: 20110411
  15. METHYLPREDNISOLONE SODIUM SUCCINATE [Concomitant]
     Dosage: 1000 MG, UNK
  16. MANNITOL [Concomitant]
     Dosage: 20 MG, UNK
     Dates: start: 20110411

REACTIONS (14)
  - Renal impairment [Not Recovered/Not Resolved]
  - Hyperphosphataemia [Not Recovered/Not Resolved]
  - Hyperkalaemia [Not Recovered/Not Resolved]
  - Hepatic function abnormal [Recovering/Resolving]
  - Hyperbilirubinaemia [Recovering/Resolving]
  - Platelet count decreased [Unknown]
  - Chronic myeloid leukaemia [Fatal]
  - Mental disorder [Not Recovered/Not Resolved]
  - Monocyte count increased [Unknown]
  - Neutropenia [Recovered/Resolved]
  - Tremor [Recovered/Resolved]
  - Eosinophil count increased [Not Recovered/Not Resolved]
  - Blood glucose increased [Unknown]
  - Anaemia [Not Recovered/Not Resolved]
